FAERS Safety Report 4388929-4 (Version None)
Quarter: 2004Q2

REPORT INFORMATION
  Report Type: 
  Country: None (occurrence: None)
  Receive Date: 20040628
  Receipt Date: 20040614
  Transmission Date: 20050107
  Serious: Yes (Death)
  Sender: FDA-Public Use
  Company Number: 2004-BL-00115BL

PATIENT
  Age: 69 Year
  Sex: Male

DRUGS (2)
  1. SPIRIVA [Suspect]
     Indication: CHRONIC OBSTRUCTIVE AIRWAYS DISEASE
     Dosage: (18 MCG,) IH
     Route: 055
     Dates: start: 20040602, end: 20040607
  2. SYMBICORT (SYMBICORT TURBUHALER ^DRACO^) (AE) [Concomitant]

REACTIONS (1)
  - HAEMATEMESIS [None]
